FAERS Safety Report 4984297-5 (Version None)
Quarter: 2006Q2

REPORT INFORMATION
  Report Type: 
  Country: None (occurrence: None)
  Receive Date: 20060420
  Receipt Date: 20060407
  Transmission Date: 20061013
  Serious: Yes (Death, Other)
  Sender: FDA-Public Use
  Company Number: 2006006528

PATIENT
  Age: 43 Year
  Sex: Female
  Weight: 62 kg

DRUGS (6)
  1. LYRICA [Suspect]
     Indication: POST HERPETIC NEURALGIA
     Dosage: 150 MG,ORAL
     Route: 048
     Dates: start: 20051217, end: 20051224
  2. CARBAMAZEPINE [Suspect]
     Indication: POST HERPETIC NEURALGIA
     Dosage: 400 MG, ORAL
     Route: 048
     Dates: start: 20040401, end: 20051223
  3. HYDROMORPHONE HCL [Concomitant]
  4. AMITRIPTYLINE (AMITRIPTYLINE) [Concomitant]
  5. CHEMOTHERAPY NOS (CHEMOTHERAPY NOS) [Concomitant]
  6. OXYCODONE (OXYCODONE) [Concomitant]

REACTIONS (6)
  - CONVULSION [None]
  - DRUG EFFECT DECREASED [None]
  - DRUG INTERACTION [None]
  - MULTI-ORGAN FAILURE [None]
  - PNEUMONIA ASPIRATION [None]
  - RESPIRATORY FAILURE [None]
